FAERS Safety Report 4753074-2 (Version None)
Quarter: 2005Q3

REPORT INFORMATION
  Report Type: 
  Country: None (occurrence: None)
  Receive Date: 20050826
  Receipt Date: 20050314
  Transmission Date: 20060218
  Serious: Yes (Hospitalization, Disabling, Other)
  Sender: FDA-Public Use
  Company Number: US-MERCK-0503USA02868

PATIENT
  Age: 58 Year
  Sex: Male
  Weight: 86 kg

DRUGS (7)
  1. VIOXX [Suspect]
     Indication: ARTHRALGIA
     Route: 048
     Dates: start: 20000801, end: 20011201
  2. CARDURA [Concomitant]
     Indication: HYPERTENSION
     Route: 065
  3. MONOPRIL [Concomitant]
     Indication: HYPERTENSION
     Route: 065
     Dates: start: 19970101
  4. TENORMIN [Concomitant]
     Indication: HYPERTENSION
     Route: 065
     Dates: start: 19990101
  5. SYNTHROID [Concomitant]
     Route: 065
  6. ECOTRIN [Concomitant]
     Indication: ANTICOAGULANT THERAPY
     Route: 065
     Dates: start: 19870101
  7. LESCOL [Concomitant]
     Indication: BLOOD CHOLESTEROL INCREASED
     Route: 065

REACTIONS (7)
  - CEREBROVASCULAR ACCIDENT [None]
  - FLUID RETENTION [None]
  - MYOCARDIAL INFARCTION [None]
  - PARALYSIS [None]
  - PARAPLEGIA [None]
  - ROAD TRAFFIC ACCIDENT [None]
  - SWELLING [None]
